FAERS Safety Report 10253159 (Version 1)
Quarter: 2014Q2

REPORT INFORMATION
  Report Type: Spontaneous
  Country: US (occurrence: None)
  Receive Date: 20140619
  Receipt Date: 20140619
  Transmission Date: 20141212
  Serious: Yes (Hospitalization)
  Sender: FDA-Public Use
  Company Number: None

PATIENT
  Age: 69 Year
  Sex: Female

DRUGS (1)
  1. SOVALDI 400 MG GILEAD [Suspect]
     Indication: HEPATITIS C
     Route: 048
     Dates: start: 20140501, end: 20140509

REACTIONS (2)
  - Delusion [None]
  - Mental status changes [None]
